FAERS Safety Report 25999839 (Version 1)
Quarter: 2025Q4

REPORT INFORMATION
  Report Type: Spontaneous
  Country: US (occurrence: None)
  Receive Date: 20251104
  Receipt Date: 20251104
  Transmission Date: 20260118
  Serious: Yes (Hospitalization, Other)
  Sender: FDA-CTU
  Company Number: None

PATIENT
  Age: 41 Year
  Sex: Female

DRUGS (1)
  1. LENALIDOMIDE [Suspect]
     Active Substance: LENALIDOMIDE
     Indication: Hodgkin^s disease
     Dosage: FREQUENCY : DAILY;?
     Route: 048
     Dates: start: 20250602, end: 20250903

REACTIONS (6)
  - Febrile neutropenia [None]
  - Pancytopenia [None]
  - Hodgkin^s disease [None]
  - Disease progression [None]
  - Human rhinovirus test positive [None]
  - Enterovirus test positive [None]

NARRATIVE: CASE EVENT DATE: 20250809
